FAERS Safety Report 6101489-2 (Version None)
Quarter: 2009Q1

REPORT INFORMATION
  Report Type: 
  Country: None (occurrence: None)
  Receive Date: 20090227
  Receipt Date: 20090217
  Transmission Date: 20090719
  Serious: Yes (Hospitalization)
  Sender: FDA-Public Use
  Company Number: 1022556-2009-00011

PATIENT
  Sex: Female

DRUGS (2)
  1. CAPZASIN NO-MESS LIQUID 1OZ [Suspect]
     Indication: ANALGESIC THERAPY
     Dosage: 3X, TOPICAL
     Route: 061
     Dates: start: 20090128
  2. CAPZASIN NO-MESS LIQUID 1OZ [Suspect]
     Indication: THERAPEUTIC SKIN CARE TOPICAL
     Dosage: 3X, TOPICAL
     Route: 061
     Dates: start: 20090128

REACTIONS (1)
  - DRUG HYPERSENSITIVITY [None]
